FAERS Safety Report 6368664-3 (Version None)
Quarter: 2009Q3

REPORT INFORMATION
  Report Type: 
  Country: None (occurrence: None)
  Receive Date: 20090916
  Receipt Date: 20090903
  Transmission Date: 20100115
  Serious: Yes (Other)
  Sender: FDA-Public Use
  Company Number: 2009AP003594

PATIENT
  Age: 89 Year
  Sex: Female
  Weight: 61.2356 kg

DRUGS (5)
  1. TERAZOSIN HCL [Suspect]
     Indication: HYPERTENSION
     Dosage: 2 MG; QD;
  2. ESTROGENS CONJUGATED [Concomitant]
  3. ACETYLSALICYLIC ACID [Concomitant]
  4. DIPYRIDAMOLE [Concomitant]
  5. TERAZOSIN HCL [Concomitant]

REACTIONS (4)
  - FEELING ABNORMAL [None]
  - HYPOAESTHESIA [None]
  - HYPOAESTHESIA ORAL [None]
  - PRODUCT SUBSTITUTION ISSUE [None]
